FAERS Safety Report 7926108-1 (Version None)
Quarter: 2011Q4

REPORT INFORMATION
  Report Type: 
  Country: None (occurrence: None)
  Receive Date: 20111118
  Receipt Date: 20110418
  Transmission Date: 20120403
  Serious: No
  Sender: FDA-Public Use
  Company Number: US-AMGEN-USASP2011020387

PATIENT
  Age: 59 Year
  Sex: Female

DRUGS (1)
  1. ENBREL [Suspect]
     Indication: RHEUMATOID ARTHRITIS
     Dosage: 50 MG, QWK
     Dates: start: 20110303

REACTIONS (13)
  - PYREXIA [None]
  - INJECTION SITE SWELLING [None]
  - INFLUENZA [None]
  - PAIN [None]
  - INJECTION SITE ERYTHEMA [None]
  - VOMITING [None]
  - GLOSSODYNIA [None]
  - MUSCLE TIGHTNESS [None]
  - NAUSEA [None]
  - DEHYDRATION [None]
  - INJECTION SITE WARMTH [None]
  - INJECTION SITE INDURATION [None]
  - FATIGUE [None]
